FAERS Safety Report 7023668-2 (Version None)
Quarter: 2010Q3

REPORT INFORMATION
  Report Type: 
  Country: None (occurrence: None)
  Receive Date: 20100929
  Receipt Date: 20100929
  Transmission Date: 20110219
  Serious: Yes (Hospitalization)
  Sender: FDA-Public Use
  Company Number: None

PATIENT
  Sex: Male
  Weight: 64.5 kg

DRUGS (6)
  1. CYCLOPHOSPHAMIDE [Suspect]
     Dosage: 1700 MG
  2. CYTARABINE [Suspect]
     Dosage: 1016 MG
  3. MERCAPTOPURINE [Suspect]
     Dosage: 840 MG
  4. METHOTREXATE [Suspect]
     Dosage: 45 MG
  5. PEG-L- ASPARAGINASE (K -H) [Suspect]
     Dosage: 4250 MG
  6. VINCRISTINE SULFATE [Suspect]
     Dosage: 2 MG

REACTIONS (4)
  - CHILLS [None]
  - NEUTROPENIA [None]
  - PURULENCE [None]
  - PYREXIA [None]
